FAERS Safety Report 9403216 (Version 1)
Quarter: 2013Q3

REPORT INFORMATION
  Report Type: Spontaneous
  Country: US (occurrence: None)
  Receive Date: 20130712
  Receipt Date: 20130712
  Transmission Date: 20140515
  Serious: Yes (Other)
  Sender: FDA-Public Use
  Company Number: 001561490A

PATIENT
  Age: 27 Year
  Sex: Female

DRUGS (2)
  1. PROACTIV SOLUTION RENEWING CLEANSER [Suspect]
     Indication: ACNE
     Route: 061
     Dates: start: 20130415, end: 20130622
  2. PROACTIV SOLUTION REPAIRING TREATMENT [Suspect]
     Indication: ACNE
     Route: 061
     Dates: start: 20130415, end: 20130622

REACTIONS (2)
  - Swelling face [None]
  - Local swelling [None]
